FAERS Safety Report 22233424 (Version 1)
Quarter: 2023Q2

REPORT INFORMATION
  Report Type: Spontaneous
  Country: US (occurrence: None)
  Receive Date: 20230420
  Receipt Date: 20230420
  Transmission Date: 20230721
  Serious: No
  Sender: FDA-Public Use
  Company Number: US-ROCHE-3062056

PATIENT
  Sex: Female

DRUGS (2)
  1. ESBRIET [Suspect]
     Active Substance: PIRFENIDONE
     Indication: Interstitial lung disease
     Dosage: 1 CAPSULE 3 TIMES A DAY FOR 7 DAYS, THEN 2 CAPSULES 3 TIMES A DAY FOR 7 DAYS, THEN 3 CAPSULES 3 TIME
     Route: 048
     Dates: start: 202202
  2. ESBRIET [Suspect]
     Active Substance: PIRFENIDONE
     Indication: Interstitial lung disease

REACTIONS (4)
  - Dizziness [Unknown]
  - Chest discomfort [Unknown]
  - Intentional product misuse [Unknown]
  - Off label use [Unknown]
